FAERS Safety Report 4315027-8 (Version None)
Quarter: 2004Q1

REPORT INFORMATION
  Report Type: 
  Country: None (occurrence: None)
  Receive Date: 20040309
  Receipt Date: 20040227
  Transmission Date: 20041129
  Serious: Yes (Hospitalization)
  Sender: FDA-Public Use
  Company Number: AUS067968

PATIENT
  Age: 43 Year
  Sex: Female
  Weight: 73 kg

DRUGS (5)
  1. NEUPOGEN [Suspect]
     Indication: AGRANULOCYTOSIS
     Dosage: 300 MCG, 1 IN 1 DAYS, SC
     Route: 058
     Dates: start: 20031105, end: 20031109
  2. PROCHLORPERAZINE MALEATE [Concomitant]
  3. DEXAMETHASONE [Concomitant]
  4. ONDANSETRON HCL [Concomitant]
  5. LORAZEPAM [Concomitant]

REACTIONS (2)
  - PNEUMONITIS [None]
  - TACHYCARDIA [None]
